FAERS Safety Report 15813407 (Version 4)
Quarter: 2019Q1

REPORT INFORMATION
  Report Type: Spontaneous
  Country: PL (occurrence: PL)
  Receive Date: 20190111
  Receipt Date: 20190315
  Transmission Date: 20190417
  Serious: Yes (Hospitalization, Other)
  Sender: FDA-Public Use
  Company Number: PL-MYLANLABS-2019M1001888

PATIENT
  Age: 37 Year
  Sex: Female

DRUGS (19)
  1. COLECALCIFEROL [Concomitant]
     Active Substance: CHOLECALCIFEROL
     Dosage: UNK
     Route: 065
  2. FERINJECT [Suspect]
     Active Substance: FERRIC CARBOXYMALTOSE
     Dosage: 50 MILLIGRAM PER MILLILITRE
     Route: 042
  3. IRON DEXTRAN [Suspect]
     Active Substance: IRON DEXTRAN
     Indication: PRODUCT USED FOR UNKNOWN INDICATION
     Dosage: 100 MILLIGRAM, QW
     Route: 065
  4. ERYTHROPOIETIN [Suspect]
     Active Substance: ERYTHROPOIETIN
     Indication: PRODUCT USED FOR UNKNOWN INDICATION
     Dosage: 2000 INTERNATIONAL UNIT ((2000 IU, AFTER EACH DIALYSIS)
     Route: 065
  5. FOLIC ACID. [Suspect]
     Active Substance: FOLIC ACID
     Indication: PRODUCT USED FOR UNKNOWN INDICATION
     Dosage: 15 MILLIGRAM
     Route: 065
     Dates: start: 201503
  6. ASCORBIC ACID. [Concomitant]
     Active Substance: ASCORBIC ACID
     Indication: PRODUCT USED FOR UNKNOWN INDICATION
     Dosage: UNK
     Route: 065
     Dates: start: 201503
  7. TORASEMIDE [Suspect]
     Active Substance: TORSEMIDE
     Indication: PRODUCT USED FOR UNKNOWN INDICATION
     Dosage: 2.5 MILLIGRAM,UNK
     Route: 065
  8. METHYLDOPA. [Suspect]
     Active Substance: METHYLDOPA
     Indication: PRODUCT USED FOR UNKNOWN INDICATION
     Dosage: UNK
     Route: 065
     Dates: start: 201503
  9. FERINJECT [Suspect]
     Active Substance: FERRIC CARBOXYMALTOSE
     Indication: PRODUCT USED FOR UNKNOWN INDICATION
     Dosage: 100 MILLIGRAM
     Route: 042
     Dates: start: 201408, end: 201408
  10. HEPARIN [Suspect]
     Active Substance: HEPARIN SODIUM
     Indication: PRODUCT USED FOR UNKNOWN INDICATION
     Dosage: UNK
     Route: 065
  11. VENOFER [Suspect]
     Active Substance: IRON SUCROSE
     Indication: PRODUCT USED FOR UNKNOWN INDICATION
     Dosage: 100 MILLIGRAM
     Route: 042
     Dates: start: 201408
  12. SPIRAMYCIN [Suspect]
     Active Substance: SPIRAMYCIN
     Indication: PRODUCT USED FOR UNKNOWN INDICATION
     Dosage: UNK
     Route: 065
     Dates: start: 201505
  13. MALTOFER                           /00023548/ [Suspect]
     Active Substance: IRON POLYMALTOSE
     Indication: PRODUCT USED FOR UNKNOWN INDICATION
     Dosage: UNK
     Route: 048
     Dates: start: 201503
  14. CEFUROXIME. [Suspect]
     Active Substance: CEFUROXIME
     Indication: PRODUCT USED FOR UNKNOWN INDICATION
     Dosage: UNK
     Route: 065
     Dates: start: 201505
  15. ERYTHROPOIETIN [Suspect]
     Active Substance: ERYTHROPOIETIN
     Dosage: 4000 INTERNATIONAL UNIT, QW
     Route: 058
     Dates: start: 201508
  16. ALFACALCIDOL [Suspect]
     Active Substance: ALFACALCIDOL
     Indication: HYPERPARATHYROIDISM
     Dosage: 25 MICROGRAM
     Route: 065
  17. ACETYLSALICYLIC ACID [Suspect]
     Active Substance: ASPIRIN
     Indication: PROPHYLAXIS
     Dosage: 75 MILLIGRAM, QD
     Route: 048
     Dates: start: 201503
  18. SIMVASTATIN. [Suspect]
     Active Substance: SIMVASTATIN
     Indication: PRODUCT USED FOR UNKNOWN INDICATION
     Dosage: 20 MILLIGRAM
     Route: 065
  19. LEVOTHYROXINE. [Suspect]
     Active Substance: LEVOTHYROXINE
     Indication: HYPOTHYROIDISM
     Dosage: 25 MICROGRAM, QD
     Route: 065

REACTIONS (12)
  - Toxoplasmosis [Unknown]
  - Cystitis [Unknown]
  - Blood albumin decreased [Unknown]
  - Live birth [Recovered/Resolved]
  - Oedema peripheral [Unknown]
  - Hypothyroidism [Unknown]
  - Premature rupture of membranes [Unknown]
  - Maternal exposure during pregnancy [Recovered/Resolved]
  - Haematocrit decreased [Unknown]
  - Off label use [Unknown]
  - Premature delivery [Recovered/Resolved]
  - Contraindicated product administered [Unknown]
